FAERS Safety Report 6339159-8 (Version None)
Quarter: 2009Q3

REPORT INFORMATION
  Report Type: 
  Country: None (occurrence: None)
  Receive Date: 20090903
  Receipt Date: 20090828
  Transmission Date: 20100115
  Serious: Yes (Death, Hospitalization, Other)
  Sender: FDA-Public Use
  Company Number: US-CELGENEUS-163-21880-09060857

PATIENT
  Sex: Male

DRUGS (4)
  1. REVLIMID [Suspect]
     Indication: MYELODYSPLASTIC SYNDROME
     Route: 048
     Dates: start: 20081101
  2. COUMADIN [Concomitant]
     Dosage: 5MG ALTERNATING WITH 2.5MG
     Route: 065
  3. DUONEB [Concomitant]
  4. KLONOPIN [Concomitant]
     Route: 065

REACTIONS (7)
  - ASTHENIA [None]
  - CARDIAC FAILURE CONGESTIVE [None]
  - DECREASED APPETITE [None]
  - DRUG INEFFECTIVE [None]
  - HAEMATURIA [None]
  - PNEUMONIA ASPIRATION [None]
  - WEIGHT DECREASED [None]
